FAERS Safety Report 19957415 (Version 1)
Quarter: 2021Q4

REPORT INFORMATION
  Report Type: Spontaneous
  Country: US (occurrence: US)
  Receive Date: 20211015
  Receipt Date: 20211015
  Transmission Date: 20220303
  Serious: Yes (Death, Hospitalization)
  Sender: FDA-Public Use
  Company Number: US-JNJFOC-20211006234

PATIENT
  Age: 29 Year
  Sex: Female
  Weight: 61 kg

DRUGS (9)
  1. TYLENOL [Suspect]
     Active Substance: ACETAMINOPHEN
     Indication: Rheumatoid arthritis
     Dosage: ACETAMINOPHEN 500 MG AT UNKNOWN DOSE FOR MORE THAN 12 MONTHS
     Route: 048
  2. TYLENOL [Suspect]
     Active Substance: ACETAMINOPHEN
     Indication: Accidental overdose
  3. VICODIN [Suspect]
     Active Substance: ACETAMINOPHEN\HYDROCODONE BITARTRATE
     Indication: Accidental overdose
     Dosage: ACETAMINOPHEN 750 MG/HYDROCODONE BITARTRATE UNK MG;?DAILY DOSE APPROXIMATELY ACETAMINOPHEN 10000 MG/
     Route: 048
     Dates: end: 20020728
  4. VICODIN [Suspect]
     Active Substance: ACETAMINOPHEN\HYDROCODONE BITARTRATE
     Indication: Rheumatoid arthritis
  5. INDOCIN [Concomitant]
     Active Substance: INDOMETHACIN
     Indication: Rheumatoid arthritis
     Dosage: MORE THAN 12 MONTHS
     Route: 065
  6. METHOTREXATE SODIUM [Concomitant]
     Active Substance: METHOTREXATE SODIUM
     Indication: Rheumatoid arthritis
     Dosage: 20 MG PER DAY FOR MORE THAN 12 MONTHS
     Route: 065
     Dates: end: 20020727
  7. CAMPHOR [Concomitant]
     Active Substance: CAMPHOR
     Indication: Prophylaxis
  8. FIVENT [Concomitant]
     Indication: Product used for unknown indication
     Dosage: EMPERIC
     Route: 065
  9. VANCOMYCIN [Concomitant]
     Active Substance: VANCOMYCIN
     Indication: Product used for unknown indication
     Route: 065

REACTIONS (7)
  - Acute hepatic failure [Fatal]
  - Acute kidney injury [Fatal]
  - Pleural effusion [Fatal]
  - Intestinal perforation [Fatal]
  - Lactobacillus infection [Fatal]
  - Urinary tract infection staphylococcal [Fatal]
  - Accidental overdose [Fatal]
